FAERS Safety Report 8209758-7 (Version None)
Quarter: 2012Q1

REPORT INFORMATION
  Report Type: 
  Country: None (occurrence: None)
  Receive Date: 20120314
  Receipt Date: 20120301
  Transmission Date: 20120608
  Serious: Yes (Hospitalization)
  Sender: FDA-Public Use
  Company Number: AU-MYLANLABS-2012S1004888

PATIENT
  Age: 15 Year
  Sex: Female

DRUGS (9)
  1. AZATHIOPRINE [Suspect]
     Indication: INTENTIONAL DRUG MISUSE
     Dosage: SMALL QUANTITY
     Route: 048
  2. PREDNISOLONE [Suspect]
     Indication: INTENTIONAL DRUG MISUSE
     Dosage: SMALL QUANTITY
     Route: 048
  3. METHYLTHIONINIUM CHLORIDE [Concomitant]
     Indication: METHAEMOGLOBINAEMIA
     Dosage: 150MG IN 3 DIVIDED DOSES; THEN 1 MG/KG/H
     Route: 042
  4. ASCORBIC ACID [Concomitant]
     Indication: METHAEMOGLOBINAEMIA
     Route: 042
  5. METHYLTHIONINIUM CHLORIDE [Concomitant]
     Dosage: 0.1 MG/KG/HOUR
     Route: 041
  6. DAPSONE [Suspect]
     Indication: INTENTIONAL OVERDOSE
     Dosage: 7.2G
     Route: 048
  7. METHYLPREDNISOLONE [Suspect]
     Indication: INTENTIONAL DRUG MISUSE
     Dosage: SMALL QUANTITY
     Route: 048
  8. LEUCOVORIN CALCIUM [Concomitant]
     Indication: OVERDOSE
     Dosage: 15 MG/DAY
     Route: 042
  9. METHOTREXATE [Suspect]
     Indication: INTENTIONAL DRUG MISUSE
     Dosage: SMALL QUANTITY
     Route: 048

REACTIONS (10)
  - CONFUSIONAL STATE [None]
  - HAEMOLYTIC ANAEMIA [None]
  - AGITATION [None]
  - SINUS TACHYCARDIA [None]
  - METHAEMOGLOBINAEMIA [None]
  - OVERDOSE [None]
  - CYANOSIS [None]
  - LACTIC ACIDOSIS [None]
  - TACHYPNOEA [None]
  - INTENTIONAL DRUG MISUSE [None]
